FAERS Safety Report 13697520 (Version 1)
Quarter: 2017Q2

REPORT INFORMATION
  Report Type: Report from Study
  Country: IT (occurrence: IT)
  Receive Date: 20170628
  Receipt Date: 20170628
  Transmission Date: 20170830
  Serious: Yes (Hospitalization, Other)
  Sender: FDA-Public Use
  Company Number: IT-MYLANLABS-2017M1037393

PATIENT

DRUGS (1)
  1. KETOPROFEN. [Suspect]
     Active Substance: KETOPROFEN
     Indication: PRODUCT USED FOR UNKNOWN INDICATION
     Dosage: 400MG FOR THREE DAYS
     Route: 048

REACTIONS (3)
  - Gastric ulcer [Recovering/Resolving]
  - Incorrect dose administered [Recovering/Resolving]
  - Melaena [Recovering/Resolving]
